FAERS Safety Report 8408123-7 (Version None)
Quarter: 2012Q2

REPORT INFORMATION
  Report Type: 
  Country: None (occurrence: None)
  Receive Date: 20120604
  Receipt Date: 20120529
  Transmission Date: 20120825
  Serious: Yes (Hospitalization)
  Sender: FDA-Public Use
  Company Number: US-BAYER-2012-012293

PATIENT
  Age: 39 Year
  Sex: Female
  Weight: 54.422 kg

DRUGS (9)
  1. YAZ [Suspect]
     Indication: MENSTRUATION IRREGULAR
     Dosage: UNK
     Dates: start: 20101001, end: 20110701
  2. LORATADINE [Concomitant]
     Dosage: 10 MG, UNK
     Dates: start: 20110502
  3. IBUPROFEN [Concomitant]
     Dosage: 600 MG, UNK
     Dates: start: 20110502
  4. YAZ [Suspect]
     Indication: CONTRACEPTION
     Dosage: UNK
     Dates: start: 20090501, end: 20100401
  5. YASMIN [Suspect]
     Indication: CONTRACEPTION
     Dosage: UNK
     Dates: start: 20070301, end: 20090501
  6. YASMIN [Suspect]
     Indication: MENSTRUATION IRREGULAR
  7. FLONASE [Concomitant]
  8. SINGULAIR [Concomitant]
     Dosage: 10 MG, UNK
     Dates: start: 20110506
  9. ESTRADIOL W/NORETHISTERONE [Concomitant]
     Dosage: UNK
     Dates: start: 20120203

REACTIONS (8)
  - ANXIETY [None]
  - PAIN [None]
  - DEEP VEIN THROMBOSIS [None]
  - INJURY [None]
  - GENERAL PHYSICAL HEALTH DETERIORATION [None]
  - PULMONARY EMBOLISM [None]
  - EMOTIONAL DISTRESS [None]
  - FEAR [None]
